FAERS Safety Report 14564933 (Version 3)
Quarter: 2018Q4

REPORT INFORMATION
  Report Type: Report from Study
  Country: CA (occurrence: CA)
  Receive Date: 20180223
  Receipt Date: 20181010
  Transmission Date: 20190204
  Serious: Yes (Other)
  Sender: FDA-Public Use
  Company Number: CA-AMGEN-CANSL2017143788

PATIENT
  Age: 74 Year
  Sex: Female

DRUGS (1)
  1. XGEVA [Suspect]
     Active Substance: DENOSUMAB
     Indication: BREAST CANCER
     Dosage: 120 MG (1.7 ML), UNK
     Route: 065
     Dates: start: 20150910

REACTIONS (4)
  - Gastric antral vascular ectasia [Recovered/Resolved]
  - Dental caries [Unknown]
  - Gingival pain [Unknown]
  - Exostosis of jaw [Unknown]
